FAERS Safety Report 18063678 (Version 1)
Quarter: 2020Q3

REPORT INFORMATION
  Report Type: Spontaneous
  Country: CA (occurrence: CA)
  Receive Date: 20200723
  Receipt Date: 20200723
  Transmission Date: 20201103
  Serious: Yes (Hospitalization, Other)
  Sender: FDA-Public Use
  Company Number: CA-BAXTER-2020BAX014853

PATIENT
  Age: 42 Year
  Sex: Female

DRUGS (6)
  1. APO?PREDNISONE [Suspect]
     Active Substance: PREDNISONE
     Indication: ORGANISING PNEUMONIA
     Dosage: DOSAGE FORM: TABLETS
     Route: 048
  2. PROCYTOX (CYCLOPHOSPHAMIDE) 2000MG/VIAL [Suspect]
     Active Substance: CYCLOPHOSPHAMIDE
     Indication: BREAST CANCER
     Dosage: STRENGTH: 2000 MG/VIAL; DOSAGE FORM: POWDER FOR SOLUTION INTRAVENOUS
     Route: 065
  3. APO?PREDNISONE [Suspect]
     Active Substance: PREDNISONE
     Dosage: DOSAGE FORM: TABLETS
     Route: 065
  4. DOCETAXEL. [Suspect]
     Active Substance: DOCETAXEL
     Indication: BREAST CANCER
     Dosage: DOSAGE FORM: SOLUTION INTRAVENOUS
     Route: 065
  5. TRASTUZUMAB. [Suspect]
     Active Substance: TRASTUZUMAB
     Indication: BREAST CANCER
     Route: 065
  6. APO?MYCOPHENOLATE [Suspect]
     Active Substance: MYCOPHENOLIC ACID
     Indication: ORGANISING PNEUMONIA
     Dosage: DOSAGE FORM: NOT SPECIFIED
     Route: 065

REACTIONS (1)
  - Biopsy lung abnormal [Unknown]
